FAERS Safety Report 5476367-2 (Version None)
Quarter: 2007Q4

REPORT INFORMATION
  Report Type: 
  Country: None (occurrence: None)
  Receive Date: 20071003
  Receipt Date: 20070921
  Transmission Date: 20080405
  Serious: Yes (Other)
  Sender: FDA-Public Use
  Company Number: PL-PFIZER INC-2007078851

PATIENT
  Age: 74 Year
  Sex: Male

DRUGS (3)
  1. XALATAN [Suspect]
     Route: 031
     Dates: start: 20070806, end: 20070820
  2. TRUSOPT [Concomitant]
  3. BETA BLOCKING AGENTS [Concomitant]

REACTIONS (1)
  - HALLUCINATION, VISUAL [None]
